FAERS Safety Report 9200701 (Version 1)
Quarter: 2013Q2

REPORT INFORMATION
  Report Type: Spontaneous
  Country: US (occurrence: US)
  Receive Date: 20130401
  Receipt Date: 20130401
  Transmission Date: 20140414
  Serious: Yes (Other)
  Sender: FDA-Public Use
  Company Number: 2013SP003006

PATIENT
  Age: 80 Year
  Sex: Female

DRUGS (3)
  1. AMIODARONE [Suspect]
     Indication: ATRIAL FIBRILLATION
  2. AMIODARONE [Suspect]
     Indication: ATRIAL FIBRILLATION
  3. AMIODARONE [Suspect]
     Indication: ATRIAL FIBRILLATION

REACTIONS (4)
  - Electrocardiogram QT prolonged [Unknown]
  - Electrocardiogram abnormal [Unknown]
  - Blood creatinine increased [Unknown]
  - Dizziness [Unknown]
